FAERS Safety Report 7703909-6 (Version None)
Quarter: 2011Q3

REPORT INFORMATION
  Report Type: 
  Country: None (occurrence: None)
  Receive Date: 20110823
  Receipt Date: 20110812
  Transmission Date: 20111222
  Serious: Yes (Other)
  Sender: FDA-Public Use
  Company Number: US-ROCHE-765370

PATIENT
  Sex: Female
  Weight: 40.8 kg

DRUGS (2)
  1. ACCUTANE [Suspect]
     Indication: ACNE
     Dosage: FOR SIX MONTH
     Route: 065
     Dates: start: 19960101
  2. ACCUTANE [Suspect]
     Dosage: FOR SIX MONTH.
     Route: 065
     Dates: start: 20040101

REACTIONS (8)
  - BIPOLAR DISORDER [None]
  - ABDOMINAL PAIN UPPER [None]
  - COLITIS ULCERATIVE [None]
  - IRRITABLE BOWEL SYNDROME [None]
  - DIARRHOEA [None]
  - INFLAMMATORY BOWEL DISEASE [None]
  - DEPRESSION [None]
  - CROHN'S DISEASE [None]
